FAERS Safety Report 25735596 (Version 1)
Quarter: 2025Q3

REPORT INFORMATION
  Report Type: Report from Study
  Country: JP (occurrence: JP)
  Receive Date: 20250828
  Receipt Date: 20250828
  Transmission Date: 20251021
  Serious: Yes (Hospitalization, Other)
  Sender: INSMED
  Company Number: JP-INSMED, INC.-2025-03302-JP

PATIENT
  Age: 84 Year

DRUGS (1)
  1. ARIKAYCE [Suspect]
     Active Substance: AMIKACIN
     Indication: Mycobacterium avium complex infection
     Route: 055
     Dates: start: 20250623

REACTIONS (2)
  - Physical deconditioning [Unknown]
  - Dementia [Unknown]

NARRATIVE: CASE EVENT DATE: 20250101
